FAERS Safety Report 5230635-8 (Version None)
Quarter: 2007Q1

REPORT INFORMATION
  Report Type: 
  Country: None (occurrence: None)
  Receive Date: 20070206
  Receipt Date: 20070131
  Transmission Date: 20070707
  Serious: Yes (Other)
  Sender: FDA-Public Use
  Company Number: GB-GLAXOSMITHKLINE-B0359499A

PATIENT
  Sex: Female

DRUGS (2)
  1. SEROXAT [Suspect]
     Route: 065
  2. CITALOPRAM [Suspect]

REACTIONS (10)
  - ABORTION INDUCED [None]
  - APATHY [None]
  - APPETITE DISORDER [None]
  - COMPLETED SUICIDE [None]
  - DRUG WITHDRAWAL SYNDROME [None]
  - EMOTIONAL DISTRESS [None]
  - IRRITABILITY [None]
  - OVERDOSE [None]
  - TEARFULNESS [None]
  - WEIGHT FLUCTUATION [None]
